FAERS Safety Report 9229910 (Version 1)
Quarter: 2013Q2

REPORT INFORMATION
  Report Type: Spontaneous
  Country: US (occurrence: None)
  Receive Date: 20130412
  Receipt Date: 20130412
  Transmission Date: 20140414
  Serious: Yes (Other)
  Sender: FDA-Public Use
  Company Number: None

PATIENT
  Age: 60 Year
  Sex: Female

DRUGS (1)
  1. FORTEO [Suspect]
     Route: 048
     Dates: start: 20130313, end: 20130405

REACTIONS (4)
  - Hyperhidrosis [None]
  - Urticaria [None]
  - Heart rate decreased [None]
  - Abdominal pain upper [None]
